FAERS Safety Report 6724540-5 (Version None)
Quarter: 2010Q2

REPORT INFORMATION
  Report Type: 
  Country: None (occurrence: None)
  Receive Date: 20100513
  Receipt Date: 20100506
  Transmission Date: 20101027
  Serious: Yes (Other)
  Sender: FDA-Public Use
  Company Number: JP-PFIZER INC-2010053673

PATIENT
  Age: 57 Year
  Sex: Female
  Weight: 60 kg

DRUGS (15)
  1. AZULFIDINE [Suspect]
     Indication: RHEUMATOID ARTHRITIS
     Dosage: 1000 MG/DAY
     Route: 048
     Dates: start: 20041001
  2. RHEUMATREX [Suspect]
     Indication: RHEUMATOID ARTHRITIS
     Dosage: 8 MG/DAY TWICE DAILY ON WEDNESDAY AND 4 MG /DAY ONCE DAILY ON THURSDAY
     Route: 048
     Dates: start: 20050601
  3. PREDNISOLONE [Suspect]
     Dosage: 5 MG, 2X/DAY
     Route: 048
     Dates: start: 20041001
  4. RIMATIL [Suspect]
     Dosage: 100 MG, 3X/DAY
     Route: 048
     Dates: start: 20090301
  5. BREDININ [Suspect]
     Dosage: 100 MG ONCE DAILY ON WEDNESDAY ONCE A WEEK
     Route: 048
     Dates: start: 20070401
  6. TAKEPRON [Concomitant]
     Route: 048
  7. MUCOSTA [Concomitant]
     Route: 048
  8. LOXONIN [Concomitant]
     Route: 048
  9. ADALAT CC [Concomitant]
     Route: 048
  10. CANDESARTAN CILEXETIL [Concomitant]
     Route: 048
  11. FOSAMAX [Concomitant]
     Route: 048
  12. CELECTOL [Concomitant]
     Route: 048
  13. LASIX [Concomitant]
     Route: 048
  14. ISCOTIN [Concomitant]
     Route: 048
  15. INFLIXIMAB [Concomitant]
     Dosage: 200 MG/DAY ON 26JAN2010, 09FEB2010, AND 09MAR2010
     Route: 042
     Dates: start: 20100126, end: 20100309

REACTIONS (14)
  - BLOOD CREATININE INCREASED [None]
  - BLOOD LACTATE DEHYDROGENASE INCREASED [None]
  - BLOOD POTASSIUM INCREASED [None]
  - BLOOD PRESSURE DECREASED [None]
  - BLOOD UREA INCREASED [None]
  - DEPRESSED LEVEL OF CONSCIOUSNESS [None]
  - DISSEMINATED INTRAVASCULAR COAGULATION [None]
  - EPSTEIN-BARR VIRUS INFECTION [None]
  - HEPATIC ENZYME INCREASED [None]
  - LYMPHOMA [None]
  - LYMPHOPROLIFERATIVE DISORDER [None]
  - MOUTH HAEMORRHAGE [None]
  - PAIN [None]
  - SEPSIS [None]
